FAERS Safety Report 8508273-0 (Version None)
Quarter: 2012Q2

REPORT INFORMATION
  Report Type: 
  Country: None (occurrence: None)
  Receive Date: 20120405
  Receipt Date: 20090304
  Transmission Date: 20120825
  Serious: Yes (Other)
  Sender: FDA-Public Use
  Company Number: PHEH2009US01069

PATIENT
  Age: 63 Year
  Sex: Male
  Weight: 114.3 kg

DRUGS (2)
  1. RECLAST [Suspect]
     Indication: OSTEOPOROSIS
     Dosage: 5 MG, ONCE/SINGLE, INFUSION
     Dates: start: 20081120, end: 20081120
  2. CONTRAST MEDIA (NO INGREDIENTS/SUBSTANCES) [Suspect]
     Dosage: INTRAVENOUS
     Route: 042
     Dates: start: 20081120, end: 20081120

REACTIONS (5)
  - RENAL FAILURE ACUTE [None]
  - BLOOD CREATININE INCREASED [None]
  - FLANK PAIN [None]
  - URINE OUTPUT DECREASED [None]
  - ABDOMINAL PAIN [None]
